FAERS Safety Report 4538295-6 (Version None)
Quarter: 2004Q4

REPORT INFORMATION
  Report Type: 
  Country: None (occurrence: None)
  Receive Date: 20041221
  Receipt Date: 20041209
  Transmission Date: 20050328
  Serious: Yes (Life-Threatening)
  Sender: FDA-Public Use
  Company Number: 2003AP04436

PATIENT
  Age: 90 Year
  Sex: Female
  Weight: 39.5 kg

DRUGS (5)
  1. SEROQUEL [Suspect]
     Indication: PSYCHOMOTOR HYPERACTIVITY
     Dosage: 25 MG TID PO
     Route: 048
     Dates: start: 20031015, end: 20031016
  2. BENZALIN [Suspect]
     Dosage: 5 MG DAILY PO
     Route: 048
     Dates: end: 20031014
  3. GRAMALIL [Suspect]
     Dosage: 25 MG TID PO
     Route: 048
     Dates: end: 20041014
  4. NEULEPTIL [Suspect]
     Indication: PSYCHOMOTOR HYPERACTIVITY
     Dosage: 3 MG DAILY PO
     Route: 048
     Dates: start: 20031015, end: 20031015
  5. SALIPEX [Suspect]
     Dosage: 20 MG DAILY PO
     Route: 048
     Dates: end: 20031014

REACTIONS (2)
  - BLOOD PRESSURE DECREASED [None]
  - SHOCK [None]
